FAERS Safety Report 12513767 (Version 1)
Quarter: 2016Q2

REPORT INFORMATION
  Report Type: Spontaneous
  Country: US (occurrence: None)
  Receive Date: 20160629
  Receipt Date: 20160629
  Transmission Date: 20160815
  Serious: Yes (Other)
  Sender: FDA-Public Use
  Company Number: None

PATIENT
  Age: 67 Year
  Sex: Female
  Weight: 64.41 kg

DRUGS (6)
  1. NORTHERA [Concomitant]
     Active Substance: DROXIDOPA
  2. ALPRAZOLAM. [Concomitant]
     Active Substance: ALPRAZOLAM
  3. DIAZEPAM. [Concomitant]
     Active Substance: DIAZEPAM
  4. PRAMIPEXOLE. [Concomitant]
     Active Substance: PRAMIPEXOLE
  5. DUOPA [Suspect]
     Active Substance: CARBIDOPA\LEVODOPA
     Dates: start: 20160425, end: 20160614
  6. CITALOPRAM [Concomitant]
     Active Substance: CITALOPRAM HYDROBROMIDE

REACTIONS (7)
  - Fall [None]
  - Constipation [None]
  - Hallucination, visual [None]
  - Eating disorder [None]
  - Hypotension [None]
  - Nausea [None]
  - Asthenia [None]

NARRATIVE: CASE EVENT DATE: 20160613
